FAERS Safety Report 11520749 (Version 2)
Quarter: 2015Q4

REPORT INFORMATION
  Report Type: Spontaneous
  Country: US (occurrence: US)
  Receive Date: 20150918
  Receipt Date: 20151020
  Transmission Date: 20160304
  Serious: Yes (Life-Threatening, Hospitalization, Other)
  Sender: FDA-Public Use
  Company Number: US-ELI_LILLY_AND_COMPANY-US201509004738

PATIENT
  Age: 65 Year
  Sex: Female

DRUGS (11)
  1. INSULIN HUMAN [Interacting]
     Active Substance: INSULIN HUMAN
     Dosage: 10 U, EVERY MEAL
     Route: 065
  2. LANTUS [Concomitant]
     Active Substance: INSULIN GLARGINE
  3. NEURONTIN [Interacting]
     Active Substance: GABAPENTIN
     Indication: NERVE INJURY
     Route: 065
  4. INSULIN HUMAN [Suspect]
     Active Substance: INSULIN HUMAN
     Indication: DIABETES MELLITUS
     Route: 065
  5. NOVOLOG [Concomitant]
     Active Substance: INSULIN ASPART
  6. AMLODIPINE [Concomitant]
     Active Substance: AMLODIPINE BESYLATE
  7. ASPIRIN                            /00002701/ [Concomitant]
     Active Substance: ASPIRIN
     Dosage: 325 MG, UNK
  8. INSULIN HUMAN [Interacting]
     Active Substance: INSULIN HUMAN
     Dosage: 50 U, QD
     Route: 065
  9. VERAPAMIL [Concomitant]
     Active Substance: VERAPAMIL HYDROCHLORIDE
  10. LISINOPRIL. [Concomitant]
     Active Substance: LISINOPRIL
  11. LEVEMIR [Concomitant]
     Active Substance: INSULIN DETEMIR

REACTIONS (31)
  - Cerebrovascular accident [Unknown]
  - Hypoglycaemic unconsciousness [Unknown]
  - Dysphonia [Unknown]
  - Nerve injury [Unknown]
  - Blindness unilateral [Unknown]
  - Hypophagia [Unknown]
  - Blood glucose abnormal [Recovered/Resolved]
  - Hypoglycaemic unconsciousness [Unknown]
  - Vocal cord disorder [Unknown]
  - Oropharyngeal pain [Unknown]
  - Visual impairment [Unknown]
  - Coma [Unknown]
  - Confusional state [Unknown]
  - Visual field defect [Unknown]
  - Rotator cuff syndrome [Unknown]
  - Extra dose administered [Unknown]
  - Heart rate decreased [Unknown]
  - Loss of consciousness [Unknown]
  - Pancreatitis [Unknown]
  - Memory impairment [Not Recovered/Not Resolved]
  - Abasia [Unknown]
  - Pain [Unknown]
  - Hypotension [Unknown]
  - Drug interaction [Unknown]
  - Incorrect dose administered [Unknown]
  - Drug ineffective [Unknown]
  - Cardiac disorder [Unknown]
  - Blood glucose increased [Unknown]
  - Urinary tract infection [Unknown]
  - Dysphagia [Unknown]
  - Insulin resistance [Unknown]

NARRATIVE: CASE EVENT DATE: 201507
